FAERS Safety Report 15097703 (Version 2)
Quarter: 2018Q3

REPORT INFORMATION
  Report Type: Spontaneous
  Country: RU (occurrence: RU)
  Receive Date: 20180702
  Receipt Date: 20180712
  Transmission Date: 20181010
  Serious: Yes (Life-Threatening, Other)
  Sender: FDA-Public Use
  Company Number: RU-ABBVIE-18S-251-2405252-00

PATIENT
  Age: 7 Year
  Sex: Female
  Weight: 19 kg

DRUGS (3)
  1. LYSTHENON [Concomitant]
     Active Substance: SUCCINYLCHOLINE CHLORIDE
     Indication: SCLERAL OPERATION
     Route: 042
     Dates: start: 20180628, end: 20180628
  2. SEVORANE [Suspect]
     Active Substance: SEVOFLURANE
     Indication: SCLERAL OPERATION
     Route: 007
     Dates: start: 20180628, end: 20180628
  3. PROPOFOL. [Concomitant]
     Active Substance: PROPOFOL
     Indication: SCLERAL OPERATION
     Route: 042
     Dates: start: 20180628, end: 20180628

REACTIONS (3)
  - Hyperthermia malignant [Recovered/Resolved]
  - Myoglobin blood increased [Recovered/Resolved]
  - Haematuria [Recovered/Resolved]

NARRATIVE: CASE EVENT DATE: 20180628
